FAERS Safety Report 5424772-2 (Version None)
Quarter: 2007Q3

REPORT INFORMATION
  Report Type: 
  Country: None (occurrence: None)
  Receive Date: 20070824
  Receipt Date: 20070815
  Transmission Date: 20080115
  Serious: Yes (Other)
  Sender: FDA-Public Use
  Company Number: US-NOVOPROD-262840

PATIENT

DRUGS (2)
  1. NOVOLOG MIX 70/30 [Suspect]
     Indication: TYPE 1 DIABETES MELLITUS
     Dosage: 90 IU, QD - 60 IU IN A.M. + 30 IU IN P.M.
     Dates: start: 20060101
  2. HUMALOG [Concomitant]
     Indication: TYPE 1 DIABETES MELLITUS
     Dosage: 4-5 IU, QD
     Route: 058

REACTIONS (4)
  - DYSPNOEA [None]
  - NO THERAPEUTIC RESPONSE [None]
  - RASH GENERALISED [None]
  - RASH PAPULAR [None]
